FAERS Safety Report 5421209-4 (Version None)
Quarter: 2007Q3

REPORT INFORMATION
  Report Type: 
  Country: None (occurrence: None)
  Receive Date: 20070821
  Receipt Date: 20070810
  Transmission Date: 20080115
  Serious: Yes (Death, Other)
  Sender: FDA-Public Use
  Company Number: JP-SANOFI-SYNTHELABO-A01200708527

PATIENT
  Sex: Male
  Weight: 70 kg

DRUGS (7)
  1. CALCIUM GLUCONATE [Concomitant]
     Indication: PREMEDICATION
     Dosage: 1 DF
     Route: 042
     Dates: start: 20070607, end: 20070621
  2. DEXAMETHASONE SODIUM PHOSPHATE [Concomitant]
     Indication: PREMEDICATION
     Route: 042
     Dates: start: 20070607, end: 20070621
  3. MAGNESIUM SULFATE_GLUCOSE [Concomitant]
     Indication: PREMEDICATION
     Dosage: 1 DF
     Route: 042
     Dates: start: 20070607, end: 20070621
  4. GRANISETRON  HCL [Concomitant]
     Indication: PREMEDICATION
     Route: 042
     Dates: start: 20070607, end: 20070721
  5. FLUOROURACIL [Suspect]
     Dosage: 600 MG/BODY=33.5 MG/M2 BOLUS THEN 3600 MG/BODY=1989 MG/M2 CONTINUOUS INFUSION ON DAY 1-2
     Route: 042
     Dates: start: 20060904, end: 20070622
  6. LEUCOVORIN CALCIUM [Suspect]
     Dosage: 350 MG/BODY=193.4MG/M2
     Route: 042
     Dates: start: 20060904, end: 20070621
  7. OXALIPLATIN [Suspect]
     Indication: COLON CANCER
     Dosage: 170 MG/BODY=93.9 MG/M2
     Route: 042
     Dates: start: 20070621, end: 20070621

REACTIONS (3)
  - HYPERGLYCAEMIA [None]
  - KETOACIDOSIS [None]
  - LEUKOPENIA [None]
